FAERS Safety Report 16331269 (Version 1)
Quarter: 2019Q2

REPORT INFORMATION
  Report Type: Spontaneous
  Country: NL (occurrence: NL)
  Receive Date: 20190520
  Receipt Date: 20190520
  Transmission Date: 20190711
  Serious: Yes (Other)
  Sender: FDA-Public Use
  Company Number: NL-JNJFOC-20190517284

PATIENT

DRUGS (1)
  1. DARZALEX [Suspect]
     Active Substance: DARATUMUMAB
     Indication: AMYLOIDOSIS
     Route: 065

REACTIONS (5)
  - Malaise [Unknown]
  - Off label use [Unknown]
  - Dialysis [Unknown]
  - Product use in unapproved indication [Unknown]
  - Diarrhoea [Unknown]
